FAERS Safety Report 5004039-7 (Version None)
Quarter: 2006Q2

REPORT INFORMATION
  Report Type: 
  Country: None (occurrence: None)
  Receive Date: 20060515
  Receipt Date: 20060515
  Transmission Date: 20061013
  Serious: Yes (Hospitalization)
  Sender: FDA-Public Use
  Company Number: None

PATIENT
  Age: 65 Year
  Sex: Female
  Weight: 105.2345 kg

DRUGS (12)
  1. RYTHMOL SR [Suspect]
     Indication: ATRIAL FIBRILLATION
     Dosage: 325 MG PO BID
     Route: 048
     Dates: start: 20060504, end: 20060511
  2. ACTOS [Concomitant]
  3. ZOLOFT [Concomitant]
  4. COUMADIN [Concomitant]
  5. ATIVAN [Concomitant]
  6. TOPROL-XL [Concomitant]
  7. DITROPAN [Concomitant]
  8. VYTORIN [Concomitant]
  9. PREMARIN [Concomitant]
  10. LOMOTIL [Concomitant]
  11. ALTACE [Concomitant]
  12. GLIMEPIRIDE [Concomitant]

REACTIONS (5)
  - CARDIAC FAILURE CONGESTIVE [None]
  - CONDITION AGGRAVATED [None]
  - ELECTROCARDIOGRAM QT INTERVAL ABNORMAL [None]
  - ELECTROCARDIOGRAM T WAVE ABNORMAL [None]
  - HEART RATE DECREASED [None]
